FAERS Safety Report 10419273 (Version 3)
Quarter: 2015Q1

REPORT INFORMATION
  Report Type: Spontaneous
  Country: US (occurrence: None)
  Receive Date: 20140625
  Receipt Date: 20150129
  Transmission Date: 20150720
  Serious: No
  Sender: FDA-Public Use
  Company Number: A-NJ2014-97064

PATIENT
  Age: 72 Year
  Sex: Female

DRUGS (12)
  1. OPSUMIT [Suspect]
     Active Substance: MACITENTAN
     Indication: PULMONARY ARTERIAL HYPERTENSION
     Route: 048
     Dates: start: 201402
  2. LOPID [Concomitant]
     Active Substance: GEMFIBROZIL
  3. LEXAPRO [Concomitant]
     Active Substance: ESCITALOPRAM OXALATE
  4. OMEPRAZOLE. [Concomitant]
     Active Substance: OMEPRAZOLE
  5. SPIRONOLACTONE. [Concomitant]
     Active Substance: SPIRONOLACTONE
  6. PROAIR HFA [Concomitant]
     Active Substance: ALBUTEROL SULFATE
  7. ISOSORBIDE [Concomitant]
     Active Substance: ISOSORBIDE
  8. GLEEVEC (IMATINIB MESILATE) [Concomitant]
  9. STARLIX [Concomitant]
     Active Substance: NATEGLINIDE
  10. COUMADIN [Concomitant]
     Active Substance: WARFARIN SODIUM
  11. ASPIRIN (ACETYLSALICYLIC ACID) [Concomitant]
     Active Substance: ASPIRIN
  12. LIPITOR [Concomitant]
     Active Substance: ATORVASTATIN CALCIUM

REACTIONS (7)
  - Nausea [None]
  - Abdominal pain upper [None]
  - Lethargy [None]
  - Red blood cell count decreased [None]
  - Ocular icterus [None]
  - Vomiting [None]
  - Anaemia [None]

NARRATIVE: CASE EVENT DATE: 20140313
